FAERS Safety Report 17262337 (Version 1)
Quarter: 2019Q4

REPORT INFORMATION
  Report Type: Spontaneous
  Country: US (occurrence: US)
  Receive Date: 20191218
  Receipt Date: 20191218
  Transmission Date: 20200122
  Serious: No
  Sender: FDA-Public Use
  Company Number: None

PATIENT
  Age: 59 Year
  Sex: Female
  Weight: 75.75 kg

DRUGS (1)
  1. DULOXETINE (DULOXETINE HCL 20MG CAP,EC) [Suspect]
     Active Substance: DULOXETINE HYDROCHLORIDE
     Indication: DEPRESSION
     Dosage: ?          OTHER FREQUENCY:AM;?
     Route: 048
     Dates: start: 20191101, end: 20191126

REACTIONS (3)
  - Agitation [None]
  - Hypoaesthesia [None]
  - Muscle spasms [None]

NARRATIVE: CASE EVENT DATE: 20191126
